FAERS Safety Report 20869911 (Version 2)
Quarter: 2022Q3

REPORT INFORMATION
  Report Type: Spontaneous
  Country: US (occurrence: US)
  Receive Date: 20220525
  Receipt Date: 20220825
  Transmission Date: 20221027
  Serious: No
  Sender: FDA-Public Use
  Company Number: US-AMGEN-USASP2022082118

PATIENT
  Age: 88 Year
  Sex: Female

DRUGS (12)
  1. REPATHA [Suspect]
     Active Substance: EVOLOCUMAB
     Dosage: 140 MILLIGRAM, Q2WK
     Route: 065
  2. REPATHA [Suspect]
     Active Substance: EVOLOCUMAB
     Indication: Blood cholesterol increased
     Dosage: UNK
     Route: 065
  3. REPATHA [Suspect]
     Active Substance: EVOLOCUMAB
     Indication: Product used for unknown indication
     Dosage: UNK
     Route: 065
  4. REPATHA [Suspect]
     Active Substance: EVOLOCUMAB
     Route: 065
  5. REPATHA [Suspect]
     Active Substance: EVOLOCUMAB
     Route: 065
  6. REPATHA [Suspect]
     Active Substance: EVOLOCUMAB
     Route: 065
  7. REPATHA [Suspect]
     Active Substance: EVOLOCUMAB
     Route: 065
  8. REPATHA [Suspect]
     Active Substance: EVOLOCUMAB
     Route: 065
  9. REPATHA [Suspect]
     Active Substance: EVOLOCUMAB
     Route: 065
  10. REPATHA [Suspect]
     Active Substance: EVOLOCUMAB
     Route: 065
  11. REPATHA [Concomitant]
     Active Substance: EVOLOCUMAB
     Indication: Product used for unknown indication
     Route: 065
  12. REPATHA [Concomitant]
     Active Substance: EVOLOCUMAB
     Route: 065

REACTIONS (4)
  - Accidental exposure to product [Unknown]
  - Wrong technique in product usage process [Unknown]
  - Injection site haemorrhage [Unknown]
  - Device difficult to use [Unknown]

NARRATIVE: CASE EVENT DATE: 20220510
